FAERS Safety Report 9574618 (Version 2)
Quarter: 2013Q4

REPORT INFORMATION
  Report Type: Report from Study
  Country: JP (occurrence: JP)
  Receive Date: 20131001
  Receipt Date: 20131018
  Transmission Date: 20140711
  Serious: Yes (Death, Hospitalization, Other)
  Sender: FDA-Public Use
  Company Number: JP-TAKEDA-2013TJP001195

PATIENT
  Age: 86 Year
  Sex: Female

DRUGS (6)
  1. LANSOPRAZOLE [Suspect]
     Indication: PROPHYLAXIS AGAINST GASTROINTESTINAL ULCER
     Dosage: 15 MG, QD
     Route: 048
     Dates: start: 20120724, end: 20130306
  2. BLOPRESS [Concomitant]
     Dosage: 16 MG, UNK
     Route: 048
     Dates: end: 20130306
  3. LOXONIN [Concomitant]
     Indication: SPINAL OSTEOARTHRITIS
     Route: 048
     Dates: end: 20130306
  4. BAYASPIRIN [Concomitant]
     Route: 048
     Dates: end: 20130306
  5. NORVASC [Concomitant]
     Route: 048
     Dates: end: 20130306
  6. SYMMETREL [Concomitant]
     Route: 048
     Dates: end: 20130306

REACTIONS (2)
  - Cardiac failure [Fatal]
  - Myocardial infarction [Fatal]
